FAERS Safety Report 18658124 (Version 1)
Quarter: 2020Q4

REPORT INFORMATION
  Report Type: Report from Study
  Country: DE (occurrence: CO)
  Receive Date: 20201223
  Receipt Date: 20201223
  Transmission Date: 20210114
  Serious: Yes (Hospitalization, Other)
  Sender: FDA-Public Use
  Company Number: CO-ELI_LILLY_AND_COMPANY-CO202011006079

PATIENT
  Age: 72 Year
  Sex: Male

DRUGS (1)
  1. CETUXIMAB. [Suspect]
     Active Substance: CETUXIMAB
     Indication: COLORECTAL CANCER
     Dosage: 400 MG/M2, WEEKLY (1/W)
     Route: 065
     Dates: start: 20200120

REACTIONS (5)
  - Weight decreased [Recovering/Resolving]
  - Postoperative renal failure [Recovering/Resolving]
  - Fall [Recovered/Resolved]
  - Postoperative delirium [Recovering/Resolving]
  - Bone operation [Recovered/Resolved]

NARRATIVE: CASE EVENT DATE: 202008
